FAERS Safety Report 11654879 (Version 2)
Quarter: 2015Q4

REPORT INFORMATION
  Report Type: Spontaneous
  Country: JP (occurrence: JP)
  Receive Date: 20151023
  Receipt Date: 20151229
  Transmission Date: 20160304
  Serious: Yes (Hospitalization, Other)
  Sender: FDA-Public Use
  Company Number: JP-BRISTOL-MYERS SQUIBB COMPANY-BMS-2015-067357

PATIENT
  Age: 72 Year
  Sex: Male

DRUGS (6)
  1. CDDP [Concomitant]
     Active Substance: CISPLATIN
     Indication: NASAL SINUS CANCER
     Route: 041
  2. 5-FU                               /00098801/ [Concomitant]
     Active Substance: FLUOROURACIL
     Indication: NASAL SINUS CANCER
     Route: 041
  3. HEPARIN [Concomitant]
     Active Substance: HEPARIN SODIUM
     Indication: PRODUCT USED FOR UNKNOWN INDICATION
     Route: 065
  4. ERBITUX [Suspect]
     Active Substance: CETUXIMAB
     Indication: NASAL SINUS CANCER
     Dosage: 5 MG/ML, UNK
     Route: 041
  5. KEPPRA [Concomitant]
     Active Substance: LEVETIRACETAM
     Indication: EPILEPSY
     Route: 048
  6. ISOBIDE                            /00586301/ [Concomitant]
     Indication: POLYURIA
     Route: 048

REACTIONS (2)
  - Venous thrombosis limb [Not Recovered/Not Resolved]
  - Aortic dissection [Not Recovered/Not Resolved]

NARRATIVE: CASE EVENT DATE: 20151006
